FAERS Safety Report 24392212 (Version 1)
Quarter: 2024Q4

REPORT INFORMATION
  Report Type: Spontaneous
  Country: CN (occurrence: CN)
  Receive Date: 20241003
  Receipt Date: 20241003
  Transmission Date: 20250114
  Serious: Yes (Other)
  Sender: ROCHE
  Company Number: CN-ROCHE-10000095493

PATIENT
  Age: 53 Year
  Sex: Male

DRUGS (2)
  1. ALECTINIB [Suspect]
     Active Substance: ALECTINIB
     Indication: Lung neoplasm malignant
     Route: 065
  2. LORLATINIB [Concomitant]
     Active Substance: LORLATINIB
     Indication: Lung neoplasm malignant
     Route: 065

REACTIONS (2)
  - Central nervous system neoplasm [Unknown]
  - Drug intolerance [Unknown]
